FAERS Safety Report 13266095 (Version 1)
Quarter: 2017Q1

REPORT INFORMATION
  Report Type: Spontaneous
  Country: TR (occurrence: TR)
  Receive Date: 20170223
  Receipt Date: 20170223
  Transmission Date: 20170428
  Serious: Yes (Life-Threatening, Hospitalization, Other)
  Sender: FDA-Public Use
  Company Number: TR-MYLANLABS-2017M1010318

PATIENT

DRUGS (1)
  1. METHOTREXATE. [Suspect]
     Active Substance: METHOTREXATE
     Indication: ECTOPIC PREGNANCY
     Dosage: 50 MG/M2 (2 DOSES)
     Route: 065

REACTIONS (7)
  - Toxicity to various agents [Recovered/Resolved]
  - Diarrhoea haemorrhagic [Recovered/Resolved]
  - Haemoglobin decreased [Recovered/Resolved]
  - Rash macular [Recovered/Resolved]
  - Maternal exposure during pregnancy [Unknown]
  - Mucosal inflammation [Recovered/Resolved]
  - White blood cell count decreased [Recovered/Resolved]
